FAERS Safety Report 5523609-0 (Version None)
Quarter: 2007Q4

REPORT INFORMATION
  Report Type: 
  Country: None (occurrence: None)
  Receive Date: 20071121
  Receipt Date: 20071116
  Transmission Date: 20080405
  Serious: Yes (Death)
  Sender: FDA-Public Use
  Company Number: CR-SANOFI-SYNTHELABO-A01200712987

PATIENT
  Sex: Male

DRUGS (4)
  1. ENALAPRIL MALEATE [Concomitant]
     Dosage: UNK
     Route: 065
  2. GLYBURIDE [Concomitant]
     Dosage: UNK
     Route: 065
  3. OXALIPLATIN [Suspect]
     Indication: COLORECTAL CANCER
     Route: 065
     Dates: start: 20071015, end: 20071015
  4. XELODA [Suspect]
     Route: 048
     Dates: start: 20071015, end: 20071015

REACTIONS (2)
  - CEREBROVASCULAR ACCIDENT [None]
  - THROMBOCYTOPENIA [None]
